FAERS Safety Report 21167813 (Version 2)
Quarter: 2023Q4

REPORT INFORMATION
  Report Type: Spontaneous
  Country: CA (occurrence: CA)
  Receive Date: 20220803
  Receipt Date: 20231204
  Transmission Date: 20240110
  Serious: Yes (Hospitalization)
  Sender: FDA-Public Use
  Company Number: CA-TAKEDA-2022TUS051513

PATIENT
  Age: 38 Year
  Sex: Female

DRUGS (22)
  1. PANTOPRAZOLE SODIUM [Suspect]
     Active Substance: PANTOPRAZOLE SODIUM
     Indication: Ulcer
     Dosage: 40 MG, 1X/DAY (40 MILLIGRAM, QD)
     Route: 048
     Dates: start: 20211114, end: 20221113
  2. ASPIRIN [Concomitant]
     Active Substance: ASPIRIN
     Indication: Antiplatelet therapy
     Dosage: 80 MILLIGRAM, QD
     Dates: start: 20211114, end: 20221113
  3. ASPIRIN [Concomitant]
     Active Substance: ASPIRIN
     Indication: Antiinflammatory therapy
  4. BISOPROLOL [Concomitant]
     Active Substance: BISOPROLOL\BISOPROLOL FUMARATE
     Dosage: 2.5 MILLIGRAM, QD
     Route: 048
  5. BRILINTA [Concomitant]
     Active Substance: TICAGRELOR
     Dosage: 90 MILLIGRAM, BID
     Route: 048
     Dates: start: 20211114, end: 20221113
  6. CANDESARTAN [Concomitant]
     Active Substance: CANDESARTAN
     Dosage: 8 MILLIGRAM, QD
     Route: 048
  7. CRESTOR [Concomitant]
     Active Substance: ROSUVASTATIN CALCIUM
     Indication: Blood cholesterol abnormal
     Dosage: 40 MILLIGRAM, QD
     Route: 048
     Dates: start: 20211114, end: 20221113
  8. CYMBALTA [Concomitant]
     Active Substance: DULOXETINE HYDROCHLORIDE
     Dosage: 30 MILLIGRAM, QD (CAPSULE, DELAYED RELEASE)
     Route: 048
     Dates: start: 20211114, end: 20221113
  9. EZETIMIBE [Concomitant]
     Active Substance: EZETIMIBE
     Indication: Blood cholesterol abnormal
     Dosage: 10 MILLIGRAM, QD
     Route: 048
     Dates: start: 20211114, end: 20221113
  10. FOSFOMYCIN [Concomitant]
     Active Substance: FOSFOMYCIN
     Dosage: 3 GRAM
     Route: 048
  11. HEPARIN SODIUM [Concomitant]
     Active Substance: HEPARIN SODIUM
     Indication: Anticoagulant therapy
     Dosage: 80 MILLIGRAM, QD
     Route: 058
     Dates: start: 20211114, end: 20221113
  12. METOPROLOL TARTRATE [Concomitant]
     Active Substance: METOPROLOL TARTRATE
     Indication: Hypertension
     Dosage: 25 MILLIGRAM, BID
     Route: 048
     Dates: start: 20211114, end: 20221113
  13. NICODERM CQ [Concomitant]
     Active Substance: NICOTINE
     Indication: Prophylaxis
     Dosage: 21 MILLIGRAM, QD (PATCH)
     Route: 062
     Dates: start: 20211114, end: 20221113
  14. NITROLINGUAL [Concomitant]
     Active Substance: NITROGLYCERIN
     Indication: Chest pain
     Dosage: 1.2 MILLIGRAM (SUBLINGUAL POWDER)
     Route: 060
     Dates: start: 20211114, end: 20221113
  15. NITROLINGUAL [Concomitant]
     Active Substance: NITROGLYCERIN
     Indication: Vasodilatation
  16. SEROQUEL [Concomitant]
     Active Substance: QUETIAPINE FUMARATE
     Indication: Antipsychotic therapy
     Dosage: 25 MILLIGRAM, QD
     Route: 048
     Dates: start: 20211114, end: 20221113
  17. SEROQUEL [Concomitant]
     Active Substance: QUETIAPINE FUMARATE
     Indication: Mood swings
  18. TOPAMAX [Concomitant]
     Active Substance: TOPIRAMATE
     Dosage: UNK
  19. TYLENOL [Concomitant]
     Active Substance: ACETAMINOPHEN
     Dosage: 975 MILLIGRAM
     Route: 048
  20. ZOFRAN [Concomitant]
     Active Substance: ONDANSETRON HYDROCHLORIDE
     Dosage: 4 MILLIGRAM, Q8HR
     Route: 042
  21. METOCLOPRAMIDE HYDROCHLORIDE [Concomitant]
     Active Substance: METOCLOPRAMIDE HYDROCHLORIDE
     Indication: Migraine
     Dosage: 10 MILLIGRAM
     Route: 042
  22. TOPAMAX [Concomitant]
     Active Substance: TOPIRAMATE
     Indication: Mood swings
     Dosage: 50 MILLIGRAM
     Route: 048
     Dates: start: 20211114, end: 20221113

REACTIONS (1)
  - Pancreatitis [Unknown]
